FAERS Safety Report 6314528-0 (Version None)
Quarter: 2009Q3

REPORT INFORMATION
  Report Type: 
  Country: None (occurrence: None)
  Receive Date: 20090819
  Receipt Date: 20090810
  Transmission Date: 20100115
  Serious: Yes (Other)
  Sender: FDA-Public Use
  Company Number: PHHY2009IT33461

PATIENT
  Sex: Female

DRUGS (2)
  1. AREDIA [Suspect]
     Indication: BREAST CANCER METASTATIC
     Dosage: 1 DF, QMO
     Route: 042
     Dates: start: 20040401, end: 20060201
  2. ARIMIDEX [Concomitant]
     Dosage: 1 MG, UNK
     Route: 048

REACTIONS (1)
  - OSTEOMYELITIS [None]
